FAERS Safety Report 6910200-4 (Version None)
Quarter: 2010Q3

REPORT INFORMATION
  Report Type: 
  Country: None (occurrence: None)
  Receive Date: 20100806
  Receipt Date: 20100726
  Transmission Date: 20110219
  Serious: No
  Sender: FDA-Public Use
  Company Number: US-B.I. PHARMACEUTICALS,INC./RIDGEFIELD-2010-BP-08578BP

PATIENT
  Sex: Female

DRUGS (14)
  1. SPIRIVA [Suspect]
     Indication: CHRONIC OBSTRUCTIVE PULMONARY DISEASE
     Dosage: 18 MCG
     Route: 055
     Dates: start: 20100701
  2. SPIRIVA [Suspect]
     Indication: ASTHMA
  3. SEREVENT [Concomitant]
     Indication: CHRONIC OBSTRUCTIVE PULMONARY DISEASE
  4. SEREVENT [Concomitant]
     Indication: ASTHMA
  5. DUONEB [Concomitant]
     Indication: CHRONIC OBSTRUCTIVE PULMONARY DISEASE
  6. DUONEB [Concomitant]
     Indication: ASTHMA
  7. PULMICORT [Concomitant]
     Indication: CHRONIC OBSTRUCTIVE PULMONARY DISEASE
  8. PULMICORT [Concomitant]
     Indication: ASTHMA
  9. CARTIA XT [Concomitant]
     Indication: HYPERTENSION
  10. COZAAR [Concomitant]
     Indication: HYPERTENSION
  11. FUROSEMIDE [Concomitant]
     Indication: HYPERTENSION
  12. FUROSEMIDE [Concomitant]
     Indication: RENAL DISORDER
  13. LEVOTHYROXINE [Concomitant]
     Indication: HYPOTHYROIDISM
  14. DIVALPROEX SODIUM [Concomitant]
     Indication: BIPOLAR DISORDER

REACTIONS (4)
  - EYE DISORDER [None]
  - MUSCULAR WEAKNESS [None]
  - PARAESTHESIA [None]
  - PARAESTHESIA ORAL [None]
